FAERS Safety Report 21883573 (Version 1)
Quarter: 2023Q1

REPORT INFORMATION
  Report Type: Spontaneous
  Country: GB (occurrence: GB)
  Receive Date: 20230119
  Receipt Date: 20230119
  Transmission Date: 20230417
  Serious: Yes (Other)
  Sender: FDA-Public Use
  Company Number: GB-TEVA-2023-GB-2846867

PATIENT
  Sex: Male

DRUGS (7)
  1. ALBUTEROL [Suspect]
     Active Substance: ALBUTEROL
     Indication: Atrioventricular block complete
     Dosage: 15 MILLIGRAM DAILY;
     Route: 064
  2. ALBUTEROL [Suspect]
     Active Substance: ALBUTEROL
     Dosage: 24 MILLIGRAM DAILY;
     Route: 064
  3. ALBUTEROL [Suspect]
     Active Substance: ALBUTEROL
     Dosage: 18 MILLIGRAM DAILY;
     Route: 064
  4. ALBUTEROL [Suspect]
     Active Substance: ALBUTEROL
     Dosage: 6 MILLIGRAM DAILY;
     Route: 064
  5. ALBUTEROL [Suspect]
     Active Substance: ALBUTEROL
     Dosage: 8 MILLIGRAM DAILY;
     Route: 064
  6. ASPIRIN [Suspect]
     Active Substance: ASPIRIN
     Indication: Product used for unknown indication
     Route: 064
  7. HYDROXYCHLOROQUINE [Suspect]
     Active Substance: HYDROXYCHLOROQUINE
     Indication: Product used for unknown indication
     Route: 064

REACTIONS (2)
  - Ventricular extrasystoles [Recovered/Resolved]
  - Foetal exposure during pregnancy [Unknown]
